FAERS Safety Report 7138504-3 (Version None)
Quarter: 2010Q4

REPORT INFORMATION
  Report Type: 
  Country: None (occurrence: None)
  Receive Date: 20101108
  Receipt Date: 20101022
  Transmission Date: 20110411
  Serious: Yes (Hospitalization, Other)
  Sender: FDA-Public Use
  Company Number: 20101022CINRY1662

PATIENT
  Age: 28 Year
  Sex: Male

DRUGS (7)
  1. CINRYZE [Suspect]
     Indication: HEREDITARY ANGIOEDEMA
     Dosage: SEE IMAGE; INTRAVENOUS
     Route: 042
     Dates: start: 20090501, end: 20100917
  2. CINRYZE [Suspect]
     Indication: PROPHYLAXIS
     Dosage: SEE IMAGE; INTRAVENOUS
     Route: 042
     Dates: start: 20090501, end: 20100917
  3. CINRYZE [Suspect]
     Indication: HEREDITARY ANGIOEDEMA
     Dosage: SEE IMAGE; INTRAVENOUS
     Route: 042
     Dates: start: 20100917, end: 20101021
  4. CINRYZE [Suspect]
     Indication: PROPHYLAXIS
     Dosage: SEE IMAGE; INTRAVENOUS
     Route: 042
     Dates: start: 20100917, end: 20101021
  5. CINRYZE [Suspect]
     Indication: HEREDITARY ANGIOEDEMA
     Dosage: SEE IMAGE; INTRAVENOUS
     Route: 042
     Dates: start: 20101028
  6. CINRYZE [Suspect]
     Indication: PROPHYLAXIS
     Dosage: SEE IMAGE; INTRAVENOUS
     Route: 042
     Dates: start: 20101028
  7. VICODIN [Concomitant]

REACTIONS (3)
  - BLOOD PRESSURE DECREASED [None]
  - FATIGUE [None]
  - PULMONARY EMBOLISM [None]
